FAERS Safety Report 7035570-0 (Version None)
Quarter: 2010Q4

REPORT INFORMATION
  Report Type: 
  Country: None (occurrence: None)
  Receive Date: 20101008
  Receipt Date: 20100930
  Transmission Date: 20110411
  Serious: Yes (Hospitalization, Other)
  Sender: FDA-Public Use
  Company Number: FR-ABBOTT-10P-056-0618837-00

PATIENT
  Age: 48 Year
  Sex: Female

DRUGS (5)
  1. HUMIRA [Suspect]
     Indication: CROHN'S DISEASE
     Route: 058
     Dates: start: 20080903, end: 20091209
  2. MESALAZINE [Concomitant]
     Indication: CROHN'S DISEASE
     Dates: start: 20100120
  3. VASTAREL [Concomitant]
     Indication: DEAFNESS
     Dates: start: 20070901
  4. VASTAREL [Concomitant]
     Indication: VERTIGO
  5. AVLOCARDYL [Concomitant]
     Indication: TACHYCARDIA
     Dates: start: 20080101

REACTIONS (3)
  - MULTIPLE SCLEROSIS [None]
  - MUSCULAR WEAKNESS [None]
  - MYALGIA [None]
